FAERS Safety Report 9166464 (Version 1)
Quarter: 2013Q1

REPORT INFORMATION
  Report Type: Spontaneous
  Country: PL (occurrence: PL)
  Receive Date: 20130315
  Receipt Date: 20130315
  Transmission Date: 20140127
  Serious: Yes (Other)
  Sender: FDA-Public Use
  Company Number: PL-ABBOTT-13P-129-1050128-00

PATIENT
  Age: 26 Year
  Sex: Female

DRUGS (10)
  1. CYCLOSPORINE A [Suspect]
     Indication: PRODUCT USED FOR UNKNOWN INDICATION
  2. CORTICOSTEROIDS [Concomitant]
     Indication: PRODUCT USED FOR UNKNOWN INDICATION
  3. ANTIBIOTICS [Concomitant]
     Indication: PRODUCT USED FOR UNKNOWN INDICATION
  4. ANTIFIBRINOLYTIC AGENTS [Concomitant]
     Indication: PRODUCT USED FOR UNKNOWN INDICATION
  5. NONOPIOD PLUS OPIOD ANALGESICS [Concomitant]
     Indication: PRODUCT USED FOR UNKNOWN INDICATION
  6. PACKED RED BLOOD CELLS [Concomitant]
     Indication: PRODUCT USED FOR UNKNOWN INDICATION
  7. BYPASSING AGENT [Concomitant]
     Indication: PRODUCT USED FOR UNKNOWN INDICATION
     Dosage: 90-120 1G/KG EVERY 2-3 HOURS
     Route: 040
  8. RVIIA CONCENTRATE [Concomitant]
     Indication: PRODUCT USED FOR UNKNOWN INDICATION
  9. RVIIA CONCENTRATE [Concomitant]
     Dosage: MODIFIED DOSE
  10. CHLOROQUINE [Concomitant]
     Indication: PRODUCT USED FOR UNKNOWN INDICATION

REACTIONS (1)
  - Abortion induced [Unknown]
